FAERS Safety Report 7684081-8 (Version None)
Quarter: 2011Q3

REPORT INFORMATION
  Report Type: 
  Country: None (occurrence: None)
  Receive Date: 20110815
  Receipt Date: 20110805
  Transmission Date: 20111222
  Serious: Yes (Hospitalization, Other)
  Sender: FDA-Public Use
  Company Number: US-NAPPMUNDI-USA-2011-0071713

PATIENT
  Sex: Female
  Weight: 77.098 kg

DRUGS (31)
  1. DILAUDID [Suspect]
     Indication: HEREDITARY ANGIOEDEMA
  2. ZOFRAN [Suspect]
     Dosage: 4 MG, SINGLE
     Route: 042
     Dates: start: 20110607, end: 20110607
  3. KALBITOR [Suspect]
     Dosage: 30 MG, SINGLE
     Route: 058
     Dates: start: 20110607, end: 20110607
  4. SENOKOT [Concomitant]
     Dosage: UNK UNK, PRN
     Route: 048
     Dates: end: 20110607
  5. ALUMINIUM HYDROXI W/MAGNESIUM HYDROX/SIMETHIC [Concomitant]
     Indication: PRODUCT USED FOR UNKNOWN INDICATION
     Dosage: UNK UNK, QD PRN
     Route: 048
  6. SINGULAIR [Concomitant]
     Indication: HYPERSENSITIVITY
     Dosage: 10 MG, QD PRN
     Dates: start: 20100623
  7. VICODIN [Concomitant]
     Dosage: 5 MG, UNK
     Dates: start: 20100329
  8. LIDODERM [Concomitant]
     Indication: BACK PAIN
     Dosage: UNK
     Route: 062
     Dates: start: 20100330
  9. PROTONIX [Concomitant]
     Indication: GASTROOESOPHAGEAL REFLUX DISEASE
     Dosage: 40 MG, UNK
     Route: 048
     Dates: start: 20110607, end: 20110607
  10. ALLEGRA [Concomitant]
     Dosage: 180 MG, TIW
     Dates: start: 20100720
  11. ZOFRAN [Suspect]
     Indication: NAUSEA
     Dosage: 8 MG, SINGLE
     Route: 042
     Dates: start: 20110606, end: 20110606
  12. WELLBUTRIN [Concomitant]
     Indication: DEPRESSION
     Dosage: 100 MG, QD PRN
     Route: 048
     Dates: start: 20101001
  13. NASONEX [Concomitant]
     Indication: HYPERSENSITIVITY
     Dosage: UNK, BID
     Route: 045
     Dates: start: 20100324
  14. RELPAX [Concomitant]
     Indication: MIGRAINE
     Dosage: UNK UNK, PRN
     Route: 048
     Dates: start: 20070101
  15. ZYRTEC [Concomitant]
     Dosage: 10 MG, QD PRN
     Route: 048
  16. PHENERGAN                          /00033001/ [Concomitant]
     Indication: NAUSEA
     Dosage: 25 MG, PRN
     Dates: start: 20100329
  17. RANITIDINE [Concomitant]
     Dosage: 300 MG, TIW
     Route: 048
     Dates: start: 20100701
  18. MAXALT                             /01406501/ [Concomitant]
     Indication: MIGRAINE
     Dosage: UNK
     Dates: start: 20100701
  19. ALVESCO [Concomitant]
     Indication: ASTHMA
     Dosage: UNK, QD PRN
     Route: 055
     Dates: start: 20110125
  20. DANAZOL [Concomitant]
     Dosage: 200 MG, BID PRN
     Dates: start: 20100210
  21. FLOVENT [Concomitant]
     Indication: ASTHMA
     Dosage: UNK UNK, BID
     Route: 048
  22. DILAUDID [Suspect]
     Indication: PAIN
     Dosage: UNK, SEE TEXT
     Dates: start: 20110606, end: 20110607
  23. CINRYZE [Suspect]
     Indication: HEREDITARY ANGIOEDEMA
     Dosage: UNK UNK, TIW
     Route: 042
     Dates: start: 20100610, end: 20110607
  24. MAXAIR [Concomitant]
     Indication: ASTHMA
     Dosage: UNK, PRN
     Route: 048
     Dates: start: 20100701
  25. ASTEPRO [Concomitant]
     Indication: PRODUCT USED FOR UNKNOWN INDICATION
     Dosage: 0.15 %, BID
     Route: 045
     Dates: start: 20101118
  26. PREVACID [Concomitant]
     Indication: GASTROOESOPHAGEAL REFLUX DISEASE
     Dosage: 30 MG, UNK
     Route: 048
     Dates: start: 20100101
  27. TOPAMAX [Concomitant]
     Indication: MIGRAINE
     Dosage: 50 MG, BID
     Route: 048
     Dates: start: 20080101
  28. VISTARIL                           /00058402/ [Concomitant]
     Indication: NAUSEA
     Dosage: UNK, HS
     Dates: start: 20100801
  29. KALBITOR [Suspect]
     Indication: HEREDITARY ANGIOEDEMA
     Dosage: 30 MG, SINGLE
     Route: 058
     Dates: start: 20110606, end: 20110606
  30. TYLENOL (CAPLET) [Concomitant]
     Indication: PAIN
     Dosage: 500 MG, PRN
     Route: 048
     Dates: end: 20110607
  31. LORAZEPAM [Concomitant]
     Indication: ANXIETY
     Dosage: 0.5 MG, PRN
     Dates: start: 20110317

REACTIONS (6)
  - DEHYDRATION [None]
  - HEADACHE [None]
  - HEREDITARY ANGIOEDEMA [None]
  - ABDOMINAL PAIN UPPER [None]
  - VOMITING [None]
  - MIGRAINE [None]
